FAERS Safety Report 4857013-5 (Version None)
Quarter: 2005Q4

REPORT INFORMATION
  Report Type: 
  Country: None (occurrence: None)
  Receive Date: 20051219
  Receipt Date: 20041213
  Transmission Date: 20060501
  Serious: No
  Sender: FDA-Public Use
  Company Number: US-GLAXOSMITHKLINE-A0536997A

PATIENT
  Age: 27 Year
  Sex: Female

DRUGS (8)
  1. NICODERM CQ [Suspect]
     Dates: start: 20041213
  2. NICODERM CQ [Suspect]
  3. NICODERM CQ [Suspect]
  4. NICODERM CQ [Suspect]
  5. PRENATAL VITAMINS [Concomitant]
  6. PROZAC [Concomitant]
  7. DEPAKOTE [Concomitant]
  8. SEROQUEL [Concomitant]

REACTIONS (3)
  - APPLICATION SITE PAIN [None]
  - APPLICATION SITE PARAESTHESIA [None]
  - APPLICATION SITE PRURITUS [None]
